FAERS Safety Report 5530907-3 (Version None)
Quarter: 2007Q4

REPORT INFORMATION
  Report Type: 
  Country: None (occurrence: None)
  Receive Date: 20071130
  Receipt Date: 20071119
  Transmission Date: 20080405
  Serious: Yes (Other)
  Sender: FDA-Public Use
  Company Number: US-PFIZER INC-2006143429

PATIENT
  Sex: Female
  Weight: 126 kg

DRUGS (2)
  1. BEXTRA [Suspect]
     Indication: ARTHRALGIA
  2. BEXTRA [Suspect]
     Indication: BACK PAIN

REACTIONS (19)
  - APPLICATION SITE BLEEDING [None]
  - APPLICATION SITE IRRITATION [None]
  - CANDIDIASIS [None]
  - DERMATITIS [None]
  - DERMATITIS CONTACT [None]
  - DRUG INEFFECTIVE [None]
  - DYSPNOEA [None]
  - ECZEMA [None]
  - FUNGAL SKIN INFECTION [None]
  - HAIR GROWTH ABNORMAL [None]
  - MYCOSIS FUNGOIDES [None]
  - NO THERAPEUTIC RESPONSE [None]
  - OSTEOARTHRITIS [None]
  - RASH PUSTULAR [None]
  - SKIN BACTERIAL INFECTION [None]
  - SKIN PAPILLOMA [None]
  - STEVENS-JOHNSON SYNDROME [None]
  - TREATMENT NONCOMPLIANCE [None]
  - URINARY TRACT INFECTION [None]
